FAERS Safety Report 15654613 (Version 1)
Quarter: 2018Q4

REPORT INFORMATION
  Report Type: Spontaneous
  Country: US (occurrence: US)
  Receive Date: 20181126
  Receipt Date: 20181126
  Transmission Date: 20190205
  Serious: Yes (Other)
  Sender: FDA-Public Use
  Company Number: US-TEVA-2018-US-979388

PATIENT
  Sex: Female

DRUGS (3)
  1. TECFIDERA [Suspect]
     Active Substance: DIMETHYL FUMARATE
     Route: 065
  2. COPAXONE [Suspect]
     Active Substance: GLATIRAMER ACETATE
     Dosage: FORM STRENGTH : UNKNOWN
     Route: 065
  3. PREDNISONE. [Concomitant]
     Active Substance: PREDNISONE
     Indication: HYPOAESTHESIA

REACTIONS (8)
  - Multiple sclerosis relapse [Unknown]
  - Adverse drug reaction [Recovered/Resolved]
  - Malaise [Unknown]
  - Exercise tolerance decreased [Unknown]
  - Multiple sclerosis [Unknown]
  - Viral infection [Unknown]
  - Feeling abnormal [Unknown]
  - Immune system disorder [Unknown]
